FAERS Safety Report 18635357 (Version 1)
Quarter: 2020Q4

REPORT INFORMATION
  Report Type: Spontaneous
  Country: US (occurrence: US)
  Receive Date: 20201218
  Receipt Date: 20201218
  Transmission Date: 20210114
  Serious: No
  Sender: FDA-Public Use
  Company Number: US-THERAPEUTICSMD-2020TMD03870

PATIENT
  Age: 65 Year
  Sex: Female
  Weight: 73.92 kg

DRUGS (5)
  1. LORAZEPAM. [Concomitant]
     Active Substance: LORAZEPAM
     Dosage: 0.5 UNK, 2X/DAY EVERY MORNING AND NIGHT
  2. IMVEXXY [Suspect]
     Active Substance: ESTRADIOL
     Indication: URINARY TRACT INFECTION
     Dosage: 10 ?G, 2X/WEEK BEDTIME, REMAINS LAYING
     Route: 067
     Dates: start: 20200622
  3. ZOLOFT [Concomitant]
     Active Substance: SERTRALINE HYDROCHLORIDE
     Dosage: 50 MG, 1X/DAY
  4. GABAPENTIN. [Concomitant]
     Active Substance: GABAPENTIN
     Dosage: 100 MG, 1X/DAY EVERY MORNING
  5. GABAPENTIN. [Concomitant]
     Active Substance: GABAPENTIN
     Dosage: 300 MG, 1X/DAY AT BEDTIME

REACTIONS (7)
  - Back pain [Unknown]
  - Confusional state [Unknown]
  - Abdominal distension [Unknown]
  - Mood swings [Unknown]
  - Fatigue [Unknown]
  - Hot flush [Unknown]
  - Off label use [Not Recovered/Not Resolved]

NARRATIVE: CASE EVENT DATE: 2020
